FAERS Safety Report 15717094 (Version 2)
Quarter: 2018Q4

REPORT INFORMATION
  Report Type: Spontaneous
  Country: US (occurrence: US)
  Receive Date: 20181213
  Receipt Date: 20181221
  Transmission Date: 20190205
  Serious: No
  Sender: FDA-Public Use
  Company Number: US-PFIZER INC-2018512039

PATIENT
  Age: 69 Year
  Sex: Female
  Weight: 86.18 kg

DRUGS (16)
  1. CHANTIX [Suspect]
     Active Substance: VARENICLINE TARTRATE
     Dosage: 1 MG, 2X/DAY (TAKES ONE PILL IN THE MORNING AND ONE PILL AT NIGHT )
     Route: 048
     Dates: start: 20181110, end: 20181206
  2. HYDROCODONE [Concomitant]
     Active Substance: HYDROCODONE
     Indication: LIMB DISCOMFORT
     Dosage: 10-325 MILLIGRAM TABLETS BY MOUTH ONCE PER MONTH
     Route: 048
  3. EMBEDA [Concomitant]
     Active Substance: MORPHINE SULFATE\NALTREXONE HYDROCHLORIDE
     Dosage: 1X/DAY (MORPHINE SULFATE: 30; NALTREXONE HYDROCHLORIDE1.2 MILLIGRAM CAPSULES)
     Route: 048
  4. FLUTICASONE PROPIONATE. [Concomitant]
     Active Substance: FLUTICASONE PROPIONATE
     Indication: DYSPNOEA
     Dosage: 200 UG, DAILY (50 MICROGRAMS PER SPRAY, 2 SPRAYS IN THE MORNING AND 2 SPRAYS AT NIGHT )
     Route: 045
  5. MYRBETRIQ [Concomitant]
     Active Substance: MIRABEGRON
     Indication: URINARY TRACT DISORDER
     Dosage: 50 MG, 1X/DAY
     Route: 048
  6. VERAPAMIL HCL [Concomitant]
     Active Substance: VERAPAMIL HYDROCHLORIDE
     Indication: HYPERTENSION
     Dosage: 240 MG, 1X/DAY
     Route: 048
  7. ADVAIR HFA [Concomitant]
     Active Substance: FLUTICASONE PROPIONATE\SALMETEROL XINAFOATE
     Indication: DYSPNOEA
     Dosage: (250-50 MICROGRAM INHALER ONCE IN THE MORNING AND ONCE AT NIGHT, ONE INHALATION AT EACH TIME)
     Route: 055
  8. NITROGLYCERIN. [Concomitant]
     Active Substance: NITROGLYCERIN
     Indication: CARDIAC DISORDER
     Dosage: 0.4 MG, AS NEEDED
     Route: 048
  9. FAMOTIDINE. [Concomitant]
     Active Substance: FAMOTIDINE
     Dosage: 40 MG, 1X/DAY
     Route: 048
  10. GABAPENTIN. [Concomitant]
     Active Substance: GABAPENTIN
     Indication: NEURALGIA
     Dosage: 300 MG, 2X/DAY (IN THE MORNING AND ONE AT BEDTIME)
     Route: 048
  11. IBUPROFEN. [Concomitant]
     Active Substance: IBUPROFEN
     Indication: PAIN
     Dosage: 400 MG, 2X/DAY (ONE IN THE MORNING AND ONE AT NIGHT)
  12. LASIX [Concomitant]
     Active Substance: FUROSEMIDE
     Indication: JOINT SWELLING
     Dosage: 20 MG, AS NEEDED
     Route: 048
  13. POTASSIUM CHLORIDE. [Concomitant]
     Active Substance: POTASSIUM CHLORIDE
     Dosage: 20 MEQ, UNK
     Route: 048
  14. ATROVENT HFA [Concomitant]
     Active Substance: IPRATROPIUM BROMIDE
     Indication: DYSPNOEA
     Dosage: (17 MICROGRAMS/ACTUATION, TWO INHALATIONS IN THE MORNING AND TWO INHALATIONS AT NIGHT )
     Route: 055
  15. CHANTIX [Suspect]
     Active Substance: VARENICLINE TARTRATE
     Indication: SMOKING CESSATION THERAPY
     Dosage: 0.5 MG, 2X/DAY (TAKES ONE PILL IN THE MORNING AND ONE PILL AT NIGHT )
     Route: 048
     Dates: start: 20181110, end: 20181206
  16. IBUPROFEN. [Concomitant]
     Active Substance: IBUPROFEN
     Dosage: UNK MG, 2X/DAY (SHE CUT THE 800 MILLIGRAM IBUPROFEN IN HALF) (400 MILLIGRAMS OF IBUPROFEN)
     Route: 048

REACTIONS (5)
  - Vomiting [Unknown]
  - Product dose omission [Unknown]
  - Chest pain [Unknown]
  - Aversion [Unknown]
  - Nausea [Recovering/Resolving]

NARRATIVE: CASE EVENT DATE: 20181206
